FAERS Safety Report 4579168-2 (Version None)
Quarter: 2005Q1

REPORT INFORMATION
  Report Type: 
  Country: None (occurrence: None)
  Receive Date: 20050208
  Receipt Date: 20050208
  Transmission Date: 20050727
  Serious: Yes (Death)
  Sender: FDA-Public Use
  Company Number: None

PATIENT
  Sex: Male
  Weight: 56.6996 kg

DRUGS (1)
  1. ZOLOFT [Suspect]
     Indication: DEPRESSION
     Dosage: MIN DOSE DAILY
     Dates: start: 19900101, end: 19960129

REACTIONS (3)
  - COMPLETED SUICIDE [None]
  - HOMICIDAL IDEATION [None]
  - OVERDOSE [None]
